FAERS Safety Report 16760072 (Version 1)
Quarter: 2019Q3

REPORT INFORMATION
  Report Type: Spontaneous
  Country: US (occurrence: US)
  Receive Date: 20190711
  Receipt Date: 20190711
  Transmission Date: 20191005
  Serious: Yes (Hospitalization, Other)
  Sender: FDA-Public Use
  Company Number: None

PATIENT
  Age: 61 Year
  Sex: Male

DRUGS (1)
  1. POMALYST [Suspect]
     Active Substance: POMALIDOMIDE
     Indication: PLASMA CELL MYELOMA
     Dosage: ?          OTHER FREQUENCY:QDX21/28D;?
     Route: 048
     Dates: start: 201811, end: 201906

REACTIONS (2)
  - Peripheral swelling [None]
  - Condition aggravated [None]

NARRATIVE: CASE EVENT DATE: 20190626
